FAERS Safety Report 5017547-X (Version None)
Quarter: 2006Q2

REPORT INFORMATION
  Report Type: 
  Country: None (occurrence: None)
  Receive Date: 20060525
  Receipt Date: 20060503
  Transmission Date: 20061013
  Serious: Yes (Other)
  Sender: FDA-Public Use
  Company Number: USA0509107959

PATIENT
  Age: 71 Year
  Sex: Male

DRUGS (22)
  1. FORTEO [Suspect]
     Indication: OSTEOPOROSIS
     Dosage: SEE IMAGE
     Dates: start: 20030101, end: 20040101
  2. FORTEO [Suspect]
     Indication: OSTEOPOROSIS
     Dosage: SEE IMAGE
     Dates: start: 20040701, end: 20051003
  3. FORTEO PEN (FORTEO PEN) [Concomitant]
  4. ADVAIR DISKUS 100/50 [Concomitant]
  5. ALUPENT [Concomitant]
  6. PROPECIA [Concomitant]
  7. SULINDAC [Concomitant]
  8. PRILOSEC [Concomitant]
  9. CLARITIN [Concomitant]
  10. SINGULAIR [Concomitant]
  11. WELLBUTRIN SR [Concomitant]
  12. MULTIVITAMIN [Concomitant]
  13. MINERALS NOS [Concomitant]
  14. FOLIC ACID [Concomitant]
  15. CALCIUM (CALCIUM) [Concomitant]
  16. VITAMIN D [Concomitant]
  17. LOMOTIL [Concomitant]
  18. METROGEL /CAN/ (METRONIDAZOLE) [Concomitant]
  19. RETIN A (TRETINOIN) [Concomitant]
  20. CLINORIL [Concomitant]
  21. SOMA [Concomitant]
  22. DEPO-TESTOSTERONE [Concomitant]

REACTIONS (6)
  - ALLERGIC GRANULOMATOUS ANGIITIS [None]
  - BLOOD IMMUNOGLOBULIN E INCREASED [None]
  - CHEST X-RAY ABNORMAL [None]
  - HAEMOPTYSIS [None]
  - IMMUNE RECONSTITUTION SYNDROME [None]
  - MYCOBACTERIUM AVIUM COMPLEX INFECTION [None]
